FAERS Safety Report 8087088-4 (Version None)
Quarter: 2012Q1

REPORT INFORMATION
  Report Type: 
  Country: None (occurrence: None)
  Receive Date: 20120128
  Receipt Date: 20110523
  Transmission Date: 20120608
  Serious: No
  Sender: FDA-Public Use
  Company Number: US-ABBOTT-11P-163-0727964-00

PATIENT
  Age: 42 Year
  Sex: Female

DRUGS (5)
  1. COLAZAL [Concomitant]
     Indication: CROHN'S DISEASE
  2. OMEPRAZOLE [Concomitant]
     Indication: GASTROOESOPHAGEAL REFLUX DISEASE
  3. HUMIRA [Suspect]
     Indication: CROHN'S DISEASE
     Dates: start: 20100201
  4. ALLEGRA [Concomitant]
     Indication: SEASONAL ALLERGY
  5. SINGULAIR [Concomitant]
     Indication: ASTHMA

REACTIONS (1)
  - INJECTION SITE HAEMATOMA [None]
